FAERS Safety Report 6167058-3 (Version None)
Quarter: 2009Q2

REPORT INFORMATION
  Report Type: 
  Country: None (occurrence: None)
  Receive Date: 20090424
  Receipt Date: 20090414
  Transmission Date: 20091009
  Serious: Yes (Life-Threatening, Hospitalization, Other)
  Sender: FDA-Public Use
  Company Number: CY-PFIZER INC-2009198817

PATIENT

DRUGS (1)
  1. ZITHROMAX [Suspect]
     Indication: VIRAL INFECTION
     Dosage: 500 MG, 1X/DAY
     Route: 048
     Dates: start: 20090401, end: 20090401

REACTIONS (4)
  - ACUTE HEPATIC FAILURE [None]
  - DRUG INEFFECTIVE [None]
  - HEPATIC ENCEPHALOPATHY [None]
  - HEPATIC NECROSIS [None]
